FAERS Safety Report 9838204 (Version 1)
Quarter: 2014Q1

REPORT INFORMATION
  Report Type: Spontaneous
  Country: DE (occurrence: DE)
  Receive Date: 20140123
  Receipt Date: 20140123
  Transmission Date: 20141002
  Serious: Yes (Other)
  Sender: FDA-Public Use
  Company Number: DE-PFIZER INC-2014014768

PATIENT
  Age: 68 Year
  Sex: Female
  Weight: 80 kg

DRUGS (5)
  1. XALKORI [Suspect]
     Indication: NON-SMALL CELL LUNG CANCER
     Dosage: 200 MG, 2X/DAY
     Route: 048
     Dates: start: 20131001, end: 20131206
  2. LYRICA [Concomitant]
     Dosage: 50 MG, 2X/DAY
     Route: 048
  3. BISOPROLOL FUMARATE [Concomitant]
     Dosage: 5 MG, UNK
     Route: 048
  4. MIRTAZAPINE [Concomitant]
     Dosage: 30 MG, UNK
     Route: 048
  5. DYTIDE H [Concomitant]
     Route: 048

REACTIONS (4)
  - Renal failure acute [Recovered/Resolved]
  - Dizziness [Recovered/Resolved]
  - Electrocardiogram QT prolonged [Recovered/Resolved]
  - Oedema peripheral [Recovered/Resolved]
